FAERS Safety Report 13109419 (Version 2)
Quarter: 2017Q1

REPORT INFORMATION
  Report Type: Report from Study
  Country: IT (occurrence: IT)
  Receive Date: 20170112
  Receipt Date: 20170115
  Transmission Date: 20170428
  Serious: Yes (Hospitalization)
  Sender: FDA-Public Use
  Company Number: PHHO2013IT013298

PATIENT
  Age: 68 Year
  Sex: Female
  Weight: 69 kg

DRUGS (5)
  1. XERISTAR [Concomitant]
     Active Substance: DULOXETINE HYDROCHLORIDE
     Indication: DEPRESSION
     Dosage: 60 MG, BID
     Route: 065
  2. OLANZAPINA [Concomitant]
     Active Substance: OLANZAPINE
     Indication: DEPRESSION
     Dosage: 2.5 MG, BID
     Route: 065
  3. LYRICA [Concomitant]
     Active Substance: PREGABALIN
     Indication: DEPRESSION
     Dosage: 75 MG, BID
     Route: 065
     Dates: start: 201302
  4. AMN107 [Suspect]
     Active Substance: NILOTINIB
     Indication: CHRONIC MYELOID LEUKAEMIA
     Dosage: 600 MG/DAILY
     Route: 048
     Dates: start: 20110124, end: 20140812
  5. TAUXIB [Concomitant]
     Active Substance: ETORICOXIB
     Indication: INTERVERTEBRAL DISC PROTRUSION
     Dosage: 90 MG, BID
     Route: 065
     Dates: start: 201302

REACTIONS (6)
  - Congestive cardiomyopathy [Unknown]
  - Intervertebral disc protrusion [Recovered/Resolved]
  - Syncope [Unknown]
  - Nausea [Unknown]
  - Ventricular dysfunction [Unknown]
  - Arthralgia [Unknown]

NARRATIVE: CASE EVENT DATE: 20130921
